FAERS Safety Report 23504938 (Version 1)
Quarter: 2024Q1

REPORT INFORMATION
  Report Type: Spontaneous
  Country: GB (occurrence: GB)
  Receive Date: 20240209
  Receipt Date: 20240209
  Transmission Date: 20240410
  Serious: Yes (Other)
  Sender: FDA-Public Use
  Company Number: None

PATIENT
  Age: 71 Year
  Sex: Male

DRUGS (1)
  1. GABAPENTIN [Suspect]
     Active Substance: GABAPENTIN
     Indication: Back pain
     Dosage: 2 DOSAGE FORM, TID (2 TABLETS THREE TIMES A DAY)
     Route: 065
     Dates: start: 20230203, end: 20230904

REACTIONS (1)
  - Suicidal ideation [Unknown]
